FAERS Safety Report 7785769-0 (Version None)
Quarter: 2011Q3

REPORT INFORMATION
  Report Type: 
  Country: None (occurrence: None)
  Receive Date: 20110929
  Receipt Date: 20110919
  Transmission Date: 20111222
  Serious: Yes (Death)
  Sender: FDA-Public Use
  Company Number: BR-BRISTOL-MYERS SQUIBB COMPANY-16070963

PATIENT
  Sex: Male
  Weight: 3 kg

DRUGS (10)
  1. CIPROFLOXACIN [Suspect]
  2. PENICILLIN [Suspect]
     Indication: JOINT ABSCESS
  3. VANCOMYCIN [Suspect]
     Indication: JOINT ABSCESS
  4. OXACILLIN SODIUM [Suspect]
     Indication: JOINT ABSCESS
  5. AMIKACIN SULFATE [Suspect]
  6. FLUCONAZOLE [Suspect]
  7. METRONIDAZOLE [Suspect]
  8. DEXAMETHASONE [Suspect]
  9. TEICOPLANIN [Suspect]
  10. CLINDAMYCIN [Suspect]

REACTIONS (7)
  - KLEBSIELLA SEPSIS [None]
  - THROMBOSIS MESENTERIC VESSEL [None]
  - STAPHYLOCOCCAL SEPSIS [None]
  - NECROTISING COLITIS [None]
  - TOXIC EPIDERMAL NECROLYSIS [None]
  - SOFT TISSUE NECROSIS [None]
  - VASCULITIS [None]
